FAERS Safety Report 7138089-1 (Version None)
Quarter: 2010Q4

REPORT INFORMATION
  Report Type: 
  Country: None (occurrence: None)
  Receive Date: 20101206
  Receipt Date: 20101129
  Transmission Date: 20110411
  Serious: Yes (Other)
  Sender: FDA-Public Use
  Company Number: CH-ABBOTT-10P-151-0620558-00

PATIENT
  Age: 32 Year
  Sex: Female

DRUGS (3)
  1. KLACID [Suspect]
     Indication: UPPER RESPIRATORY TRACT INFECTION
     Dates: start: 20091101, end: 20091101
  2. PREDNISONE [Suspect]
     Indication: UPPER RESPIRATORY TRACT INFECTION
     Dosage: HIGH DOSE
     Dates: start: 20091101, end: 20091101
  3. SYMBICORT [Suspect]
     Indication: ASTHMA
     Dosage: LONG TERM

REACTIONS (2)
  - ABORTION SPONTANEOUS [None]
  - DRUG EXPOSURE DURING PREGNANCY [None]
